FAERS Safety Report 8590869-1 (Version None)
Quarter: 2012Q3

REPORT INFORMATION
  Report Type: 
  Country: None (occurrence: None)
  Receive Date: 20120813
  Receipt Date: 20120724
  Transmission Date: 20120928
  Serious: Yes (Other)
  Sender: FDA-Public Use
  Company Number: JP-009507513-2012SP032458

PATIENT

DRUGS (19)
  1. LIVALO [Concomitant]
     Route: 048
  2. POLAPREZINC [Concomitant]
     Indication: GASTRIC ULCER
     Dosage: FORMULATION: POR, TRADE NAME: POLAPREZINC OD
     Route: 048
  3. FEROTYM [Concomitant]
     Indication: IRON DEFICIENCY ANAEMIA
     Route: 048
  4. LIVALO [Concomitant]
     Indication: HYPERLIPIDAEMIA
     Dosage: FORMULATION: POR
     Route: 048
  5. EPADEL [Concomitant]
     Indication: HYPERLIPIDAEMIA
     Dosage: FORMULATION: POR
     Route: 048
  6. PEG-INTRON [Suspect]
     Indication: HEPATITIS C
     Dosage: 1.5MCG/KG/WEEK
     Route: 058
     Dates: start: 20120411, end: 20120501
  7. LANSOPRAZOLE [Concomitant]
     Route: 048
  8. TELAVIC [Suspect]
     Indication: HEPATITIS C
     Route: 048
     Dates: start: 20120411, end: 20120703
  9. MAGLAX (MAGNESIUM OXIDE) [Concomitant]
     Route: 048
  10. REBETOL [Suspect]
     Indication: HEPATITIS C
     Dosage: 800 MG, QD
     Route: 048
     Dates: start: 20120411
  11. CLARITIN REDITABS [Concomitant]
     Route: 048
  12. MAGLAX (MAGNESIUM OXIDE) [Concomitant]
     Indication: CONSTIPATION
     Dosage: FORMULATION: POR
     Route: 048
  13. SODIUM FERROUS CITRATE [Concomitant]
     Indication: IRON DEFICIENCY ANAEMIA
     Dosage: FORMULATION: POR
     Route: 048
  14. CLARITIN REDITABS [Concomitant]
     Indication: PROPHYLAXIS
     Dosage: FORMULATION: POR
     Route: 048
  15. EPADEL S [Concomitant]
     Indication: HYPERLIPIDAEMIA
     Route: 048
  16. PEG-INTRON [Suspect]
     Dosage: 1.0MCG/KG/WEEK
     Route: 058
     Dates: start: 20120508
  17. ANTIVIRAL (UNSPECIFIED) [Suspect]
     Indication: HEPATITIS C
     Dosage: 1500 MG, QD
     Route: 048
     Dates: start: 20120411
  18. LANSOPRAZOLE [Concomitant]
     Indication: GASTRIC ULCER
     Dosage: FORMULATION: POR, TRADE NAME: LANSOPRAZOLE OD, ADDITIONAL INFORMATION: REFLUX OESOPHAGITIS
     Route: 048
  19. POLAPREZINC [Concomitant]
     Route: 048

REACTIONS (1)
  - ANAEMIA [None]
